FAERS Safety Report 9562341 (Version 1)
Quarter: 2013Q3

REPORT INFORMATION
  Report Type: Spontaneous
  Country: US (occurrence: US)
  Receive Date: 20130927
  Receipt Date: 20130927
  Transmission Date: 20140515
  Serious: Yes (Other)
  Sender: FDA-Public Use
  Company Number: US-MERCK-1309USA009412

PATIENT
  Age: 70 Year
  Sex: Male

DRUGS (2)
  1. JANUVIA [Suspect]
     Route: 048
  2. METFORMIN [Concomitant]

REACTIONS (1)
  - Pancreatitis acute [Unknown]
